FAERS Safety Report 22012985 (Version 1)
Quarter: 2023Q1

REPORT INFORMATION
  Report Type: Spontaneous
  Country: US (occurrence: US)
  Receive Date: 20230220
  Receipt Date: 20230220
  Transmission Date: 20230418
  Serious: Yes (Other)
  Sender: FDA-Public Use
  Company Number: US-TEVA-2023-US-2856792

PATIENT
  Age: 48 Year
  Sex: Male

DRUGS (1)
  1. AUSTEDO [Suspect]
     Active Substance: DEUTETRABENAZINE
     Indication: Dyskinesia
     Dosage: 18 MILLIGRAM DAILY;
     Route: 065
     Dates: start: 20210316

REACTIONS (4)
  - Diabetes mellitus [Unknown]
  - Fatigue [Unknown]
  - Pollakiuria [Unknown]
  - Dyskinesia [Unknown]
